FAERS Safety Report 10056743 (Version 2)
Quarter: 2014Q2

REPORT INFORMATION
  Report Type: Spontaneous
  Country: US (occurrence: US)
  Receive Date: 20140403
  Receipt Date: 20140403
  Transmission Date: 20141212
  Serious: Yes (Death, Hospitalization, Other)
  Sender: FDA-Public Use
  Company Number: PHHY2014US031385

PATIENT
  Age: 39 Year
  Sex: Female

DRUGS (6)
  1. BACLOFEN INTRATHECAL [Suspect]
     Indication: MUSCLE SPASTICITY
     Dosage: UNK UKN, UNK
     Route: 037
  2. GABAPENTIN [Suspect]
     Dosage: UNK UKN, UNK
     Route: 048
  3. TRAZODONE [Suspect]
     Dosage: UNK UKN, UNK
     Route: 048
  4. VENLAFAXINE [Suspect]
     Dosage: UNK UKN, UNK
     Route: 048
  5. VIMPAT [Suspect]
     Dosage: UNK UKN, UNK
     Route: 048
  6. DRUG THERAPY NOS [Suspect]
     Dosage: UNK UKN, UNK
     Route: 048

REACTIONS (3)
  - Brain death [Fatal]
  - Myocardial infarction [Fatal]
  - Overdose [Fatal]
